FAERS Safety Report 19400467 (Version 1)
Quarter: 2021Q2

REPORT INFORMATION
  Report Type: Spontaneous
  Country: PL (occurrence: PL)
  Receive Date: 20210610
  Receipt Date: 20210610
  Transmission Date: 20210717
  Serious: Yes (Hospitalization, Other)
  Sender: FDA-Public Use
  Company Number: CHNY2007PL03944

PATIENT
  Age: 23 Year
  Sex: Male

DRUGS (1)
  1. IBUPROFEN. [Suspect]
     Active Substance: IBUPROFEN
     Indication: INFLUENZA LIKE ILLNESS
     Dosage: 1 DF, QD IN MID DAY
     Route: 065

REACTIONS (17)
  - Drug reaction with eosinophilia and systemic symptoms [Recovered/Resolved]
  - Renal failure [Recovered/Resolved]
  - Faeces discoloured [Recovered/Resolved]
  - Hepatic failure [Recovered/Resolved]
  - Scleral discolouration [Recovered/Resolved]
  - Yellow skin [Recovered/Resolved]
  - Pruritus [Recovered/Resolved]
  - Rash [Recovered/Resolved]
  - Proteinuria [Recovered/Resolved]
  - Face oedema [Recovered/Resolved]
  - Prothrombin time prolonged [Recovered/Resolved]
  - Haematuria [Recovered/Resolved]
  - Eosinophilia [Recovered/Resolved]
  - Rash maculo-papular [Recovered/Resolved]
  - Cholestasis [Recovered/Resolved]
  - Dermatitis exfoliative [Recovered/Resolved]
  - Chromaturia [Recovered/Resolved]
